FAERS Safety Report 24440214 (Version 1)
Quarter: 2024Q4

REPORT INFORMATION
  Report Type: Spontaneous
  Country: US (occurrence: US)
  Receive Date: 20241016
  Receipt Date: 20241016
  Transmission Date: 20250115
  Serious: No
  Sender: RANBAXY
  Company Number: US-SUN PHARMACEUTICAL INDUSTRIES LTD-2024R1-449917

PATIENT
  Sex: Female

DRUGS (1)
  1. WINLEVI [Suspect]
     Active Substance: CLASCOTERONE
     Indication: Product used for unknown indication
     Dosage: UNK
     Route: 065

REACTIONS (6)
  - Poor quality product administered [Unknown]
  - Product quality issue [Unknown]
  - Skin exfoliation [Unknown]
  - Application site dryness [Unknown]
  - Skin wound [Unknown]
  - Skin laceration [Unknown]
